FAERS Safety Report 8312917-6 (Version None)
Quarter: 2012Q2

REPORT INFORMATION
  Report Type: 
  Country: None (occurrence: None)
  Receive Date: 20120426
  Receipt Date: 20120418
  Transmission Date: 20120825
  Serious: Yes (Hospitalization)
  Sender: FDA-Public Use
  Company Number: US-BAYER-2011-095509

PATIENT
  Age: 24 Year
  Sex: Female
  Weight: 72.109 kg

DRUGS (2)
  1. YASMIN [Suspect]
     Indication: ACNE
     Dosage: UNK
     Route: 048
     Dates: start: 20070821, end: 20081102
  2. DROSPIRENONE AND ETHINYL ESTRADIOL [Suspect]
     Dosage: UNK

REACTIONS (8)
  - COLITIS ISCHAEMIC [None]
  - ANXIETY [None]
  - HAEMATOCHEZIA [None]
  - RECTAL HAEMORRHAGE [None]
  - EMOTIONAL DISTRESS [None]
  - ABDOMINAL PAIN [None]
  - THROMBOSIS [None]
  - GENERAL PHYSICAL HEALTH DETERIORATION [None]
